FAERS Safety Report 5662659-0 (Version None)
Quarter: 2008Q1

REPORT INFORMATION
  Report Type: 
  Country: None (occurrence: None)
  Receive Date: 20080313
  Receipt Date: 20080303
  Transmission Date: 20080703
  Serious: Yes (Other)
  Sender: FDA-Public Use
  Company Number: US-BAYER-200815935NA

PATIENT
  Age: 65 Year
  Sex: Female

DRUGS (1)
  1. AVELOX [Suspect]
     Indication: SINUSITIS
     Dosage: TOTAL DAILY DOSE: 400 MG  UNIT DOSE: 400 MG
     Route: 048
     Dates: start: 20071227, end: 20071227

REACTIONS (5)
  - FLUSHING [None]
  - HYPERSENSITIVITY [None]
  - PRURITUS [None]
  - SKIN BURNING SENSATION [None]
  - SKIN WARM [None]
